FAERS Safety Report 11657440 (Version 2)
Quarter: 2015Q4

REPORT INFORMATION
  Report Type: Report from Study
  Country: US (occurrence: US)
  Receive Date: 20151023
  Receipt Date: 20151027
  Transmission Date: 20160304
  Serious: No
  Sender: FDA-Public Use
  Company Number: US-ABBVIE-15P-163-1431273-00

PATIENT
  Age: 25 Year
  Sex: Female

DRUGS (1)
  1. LUPRON DEPOT [Suspect]
     Active Substance: LEUPROLIDE ACETATE
     Indication: ENDOMETRIOSIS
     Route: 030
     Dates: start: 20150602

REACTIONS (8)
  - Drug dose omission [Not Recovered/Not Resolved]
  - Menstrual disorder [Recovering/Resolving]
  - Pelvic pain [Recovering/Resolving]
  - Depression [Recovering/Resolving]
  - Hyperhidrosis [Not Recovered/Not Resolved]
  - Crying [Recovering/Resolving]
  - Endometriosis [Not Recovered/Not Resolved]
  - Hot flush [Not Recovered/Not Resolved]

NARRATIVE: CASE EVENT DATE: 20150609
